FAERS Safety Report 24560538 (Version 1)
Quarter: 2024Q4

REPORT INFORMATION
  Report Type: Spontaneous
  Country: HR (occurrence: HR)
  Receive Date: 20241029
  Receipt Date: 20241029
  Transmission Date: 20250114
  Serious: Yes (Hospitalization)
  Sender: PFIZER
  Company Number: HR-TAKEDA-2024TUS104596

PATIENT
  Sex: Female

DRUGS (1)
  1. ADCETRIS [Suspect]
     Active Substance: BRENTUXIMAB VEDOTIN
     Dosage: UNK
     Route: 065

REACTIONS (4)
  - Injection site oedema [Unknown]
  - Injection site erythema [Unknown]
  - Injection site vesicles [Unknown]
  - Extravasation [Unknown]
